FAERS Safety Report 5337294-4 (Version None)
Quarter: 2007Q2

REPORT INFORMATION
  Report Type: 
  Country: None (occurrence: None)
  Receive Date: 20070529
  Receipt Date: 20070525
  Transmission Date: 20071010
  Serious: Yes (Other)
  Sender: FDA-Public Use
  Company Number: B0472818A

PATIENT
  Age: 32 Year
  Sex: Male

DRUGS (1)
  1. AUGMENTIN '125' [Suspect]
     Indication: ACUTE SINUSITIS
     Route: 048
     Dates: start: 20070315, end: 20070317

REACTIONS (1)
  - ABDOMINAL PAIN UPPER [None]
